FAERS Safety Report 4642074-9 (Version None)
Quarter: 2005Q2

REPORT INFORMATION
  Report Type: 
  Country: None (occurrence: None)
  Receive Date: 20050421
  Receipt Date: 20050421
  Transmission Date: 20051028
  Serious: Yes (Life-Threatening, Hospitalization, Disabling)
  Sender: FDA-Public Use
  Company Number: None

PATIENT
  Sex: Female
  Weight: 81.6475 kg

DRUGS (3)
  1. PREMARIN [Suspect]
     Dosage: 1 DAILY ORAL
     Route: 048
     Dates: start: 19900101, end: 20050315
  2. FISH OIL [Concomitant]
  3. L-LYSINE [Concomitant]

REACTIONS (2)
  - ARTERIAL THROMBOSIS [None]
  - BLINDNESS [None]
